FAERS Safety Report 6388590-3 (Version None)
Quarter: 2009Q4

REPORT INFORMATION
  Report Type: 
  Country: None (occurrence: None)
  Receive Date: 20091005
  Receipt Date: 20090924
  Transmission Date: 20100525
  Serious: Yes (Other)
  Sender: FDA-Public Use
  Company Number: US-JNJFOC-20090907766

PATIENT
  Age: 9 Year
  Sex: Female
  Weight: 27.22 kg

DRUGS (2)
  1. CHILDREN'S TYLENOL PLUS MULTI-SYMPTOM COLD DYE-FREE GRAPE [Suspect]
     Route: 048
  2. CHILDREN'S TYLENOL PLUS MULTI-SYMPTOM COLD DYE-FREE GRAPE [Suspect]
     Indication: NASOPHARYNGITIS
     Route: 048

REACTIONS (2)
  - CONDITION AGGRAVATED [None]
  - TRANSMISSION OF AN INFECTIOUS AGENT VIA A MEDICINAL PRODUCT [None]
